FAERS Safety Report 11107493 (Version 1)
Quarter: 2015Q2

REPORT INFORMATION
  Report Type: Spontaneous
  Country: US (occurrence: US)
  Receive Date: 20150512
  Receipt Date: 20150512
  Transmission Date: 20150821
  Serious: No
  Sender: FDA-Public Use
  Company Number: US-BAYER-2015-182688

PATIENT
  Sex: Female

DRUGS (1)
  1. MIRENA [Suspect]
     Active Substance: LEVONORGESTREL
     Dosage: 20 MCG/24HR, CONT
     Route: 015
     Dates: start: 201011

REACTIONS (5)
  - Amenorrhoea [None]
  - Premenstrual syndrome [None]
  - Abdominal distension [None]
  - Abdominal rigidity [None]
  - Abdominal pain lower [None]
